FAERS Safety Report 6677666-9 (Version None)
Quarter: 2010Q2

REPORT INFORMATION
  Report Type: 
  Country: None (occurrence: None)
  Receive Date: 20100412
  Receipt Date: 20100402
  Transmission Date: 20101027
  Serious: Yes (Hospitalization)
  Sender: FDA-Public Use
  Company Number: CHPA2010US06145

PATIENT
  Age: 12 Month
  Sex: Male
  Weight: 11.338 kg

DRUGS (1)
  1. TRIAMINIC DAY TIME COLD + COUGH (NCH) [Suspect]
     Indication: NASOPHARYNGITIS
     Dosage: LESS THAN 1/4  TSP, ONCE/SINGLE
     Route: 048
     Dates: start: 20100121, end: 20100121

REACTIONS (5)
  - CONVULSION [None]
  - INCORRECT DOSE ADMINISTERED [None]
  - MECHANICAL VENTILATION [None]
  - OVERDOSE [None]
  - RESPIRATORY ARREST [None]
